FAERS Safety Report 22646723 (Version 1)
Quarter: 2023Q2

REPORT INFORMATION
  Report Type: Spontaneous
  Country: US (occurrence: US)
  Receive Date: 20230627
  Receipt Date: 20230627
  Transmission Date: 20230721
  Serious: Yes (Other)
  Sender: FDA-Public Use
  Company Number: US-SA-SAC20230627000510

PATIENT
  Age: 24 Year
  Sex: Male

DRUGS (4)
  1. ALPROLIX [Suspect]
     Active Substance: EFTRENONACOG ALFA
     Indication: Factor IX deficiency
     Dosage: 6000 U; (5400-6600) SLOW IV PUSH EVERY 7-10 DAYS
     Route: 042
     Dates: start: 202304
  2. ALPROLIX [Suspect]
     Active Substance: EFTRENONACOG ALFA
     Indication: Factor IX deficiency
     Dosage: 6000 U; (5400-6600) SLOW IV PUSH EVERY 7-10 DAYS
     Route: 042
     Dates: start: 202304
  3. ALPROLIX [Suspect]
     Active Substance: EFTRENONACOG ALFA
     Dosage: 6000 U, PRN
     Route: 042
     Dates: start: 202304
  4. ALPROLIX [Suspect]
     Active Substance: EFTRENONACOG ALFA
     Dosage: 6000 U, PRN
     Route: 042
     Dates: start: 202304

REACTIONS (2)
  - Haemorrhage [Recovered/Resolved]
  - Joint swelling [Unknown]

NARRATIVE: CASE EVENT DATE: 20230616
